FAERS Safety Report 9390379 (Version 7)
Quarter: 2014Q2

REPORT INFORMATION
  Report Type: Report from Study
  Country: US (occurrence: US)
  Receive Date: 20130709
  Receipt Date: 20140619
  Transmission Date: 20141212
  Serious: Yes (Hospitalization, Other)
  Sender: FDA-Public Use
  Company Number: US-ALEXION-A201301531

PATIENT
  Sex: 0

DRUGS (7)
  1. ECULIZUMAB [Suspect]
     Indication: HAEMOLYTIC URAEMIC SYNDROME
     Dosage: 900 MG, QW
     Route: 042
     Dates: start: 20090807, end: 20090924
  2. ECULIZUMAB [Suspect]
     Dosage: 1200 MG, Q2W
     Route: 042
     Dates: start: 20091006
  3. CLONIDINE [Concomitant]
     Dosage: 0.3, QD
  4. PROGRAF [Concomitant]
     Dosage: 2 MG, QD
     Route: 048
     Dates: start: 20130415, end: 20130418
  5. PREDNISONE [Concomitant]
     Dosage: 10 MG, QD
     Route: 048
     Dates: start: 20130415, end: 20130418
  6. COREG [Concomitant]
     Indication: HYPERTENSION
     Dosage: UNK
  7. ALBUTEROL [Concomitant]

REACTIONS (3)
  - Gastrointestinal haemorrhage [Recovered/Resolved]
  - Gastroenteritis [Recovered/Resolved]
  - Gastroenteritis [Recovered/Resolved]
